FAERS Safety Report 7238873-X (Version None)
Quarter: 2011Q1

REPORT INFORMATION
  Report Type: 
  Country: None (occurrence: None)
  Receive Date: 20110121
  Receipt Date: 20110113
  Transmission Date: 20110831
  Serious: Yes (Other)
  Sender: FDA-Public Use
  Company Number: PHHY2010JP87943

PATIENT

DRUGS (2)
  1. ZOMETA [Suspect]
     Indication: METASTASIS
     Route: 041
  2. ZOMETA [Suspect]
     Dosage: ONCE EVERY TWO MONTHS
     Route: 041

REACTIONS (2)
  - PRIMARY SEQUESTRUM [None]
  - OSTEONECROSIS OF JAW [None]
